FAERS Safety Report 15825593 (Version 2)
Quarter: 2019Q1

REPORT INFORMATION
  Report Type: Report from Study
  Country: US (occurrence: US)
  Receive Date: 20190115
  Receipt Date: 20190321
  Transmission Date: 20190417
  Serious: No
  Sender: FDA-Public Use
  Company Number: PHEH2019US001324

PATIENT
  Sex: Female

DRUGS (1)
  1. COSENTYX [Suspect]
     Active Substance: SECUKINUMAB
     Indication: PSORIASIS
     Dosage: 300 MG, QMO
     Route: 058

REACTIONS (23)
  - Sciatica [Unknown]
  - Fibromyalgia [Unknown]
  - Hypothyroidism [Unknown]
  - Depression [Unknown]
  - Pruritus [Unknown]
  - Scar [Unknown]
  - Skin haemorrhage [Unknown]
  - Stress [Unknown]
  - Pain [Unknown]
  - Obesity [Unknown]
  - Peripheral coldness [Unknown]
  - Sinusitis [Unknown]
  - Crying [Unknown]
  - Depressed mood [Unknown]
  - Blister [Unknown]
  - Bronchitis [Unknown]
  - Injection site haemorrhage [Unknown]
  - Psoriasis [Unknown]
  - Nasopharyngitis [Unknown]
  - Skin exfoliation [Unknown]
  - Erythema [Unknown]
  - Drug ineffective [Unknown]
  - Cough [Unknown]
